FAERS Safety Report 12482868 (Version 2)
Quarter: 2016Q3

REPORT INFORMATION
  Report Type: Spontaneous
  Country: US (occurrence: US)
  Receive Date: 20160620
  Receipt Date: 20160805
  Transmission Date: 20161109
  Serious: Yes (Hospitalization)
  Sender: FDA-Public Use
  Company Number: US-PFIZER INC-2016304130

PATIENT
  Age: 70 Year
  Sex: Female

DRUGS (1)
  1. CLINDAMYCIN HCL [Suspect]
     Active Substance: CLINDAMYCIN HYDROCHLORIDE
     Indication: LOCALISED INFECTION
     Dosage: 1 DF (TABLET), 3X/DAY
     Route: 048

REACTIONS (2)
  - Diarrhoea [Recovered/Resolved]
  - Gastrointestinal disorder [Unknown]
